FAERS Safety Report 7805427-3 (Version None)
Quarter: 2011Q4

REPORT INFORMATION
  Report Type: 
  Country: None (occurrence: None)
  Receive Date: 20111010
  Receipt Date: 20110930
  Transmission Date: 20120403
  Serious: Yes (Other)
  Sender: FDA-Public Use
  Company Number: FR-TYCO HEALTHCARE/MALLINCKRODT-T201101951

PATIENT
  Age: 14 Year
  Sex: Male

DRUGS (3)
  1. MORPHINE [Suspect]
     Dosage: 90 MG DAY 2, 3
     Route: 042
  2. MORPHINE [Suspect]
     Dosage: 42 MG OVER 12 H ON DAY 3
     Route: 042
  3. MORPHINE [Suspect]
     Indication: SICKLE CELL ANAEMIA WITH CRISIS
     Dosage: 98 MG, DAY 1
     Route: 042

REACTIONS (3)
  - URINARY RETENTION [None]
  - RENAL FAILURE [None]
  - HYPERKALAEMIA [None]
